FAERS Safety Report 6098320-0 (Version None)
Quarter: 2009Q1

REPORT INFORMATION
  Report Type: 
  Country: None (occurrence: None)
  Receive Date: 20090302
  Receipt Date: 20090216
  Transmission Date: 20090719
  Serious: Yes (Hospitalization)
  Sender: FDA-Public Use
  Company Number: AU-PFIZER INC-2009173971

PATIENT

DRUGS (3)
  1. CHAMPIX [Suspect]
     Dosage: UNKNOWN
     Route: 048
     Dates: start: 20081103
  2. INDOCIN [Suspect]
     Dosage: UNKNOWN
     Route: 048
     Dates: start: 20081118, end: 20081125
  3. VOLTAREN [Suspect]

REACTIONS (3)
  - DIARRHOEA [None]
  - HAEMATOCHEZIA [None]
  - PYREXIA [None]
